FAERS Safety Report 5228894-0 (Version None)
Quarter: 2007Q1

REPORT INFORMATION
  Report Type: 
  Country: None (occurrence: None)
  Receive Date: 20070205
  Receipt Date: 20070130
  Transmission Date: 20070707
  Serious: Yes (Other)
  Sender: FDA-Public Use
  Company Number: MY-SHR-MY-2006-038653

PATIENT
  Age: 41 Year
  Sex: Female

DRUGS (1)
  1. MIRENA [Suspect]
     Dosage: 20 A?G/DAY, CONT
     Route: 015
     Dates: start: 20060821, end: 20060829

REACTIONS (3)
  - ADENOMYOSIS [None]
  - DRUG INEFFECTIVE [None]
  - MENORRHAGIA [None]
